FAERS Safety Report 10025079 (Version 1)
Quarter: 2014Q1

REPORT INFORMATION
  Report Type: Spontaneous
  Country: MY (occurrence: None)
  Receive Date: 20140212
  Receipt Date: 20140212
  Transmission Date: 20141002
  Serious: Yes (Other)
  Sender: FDA-Public Use
  Company Number: CO-OR-MY-2013-204

PATIENT
  Age: 2 Month
  Sex: Female

DRUGS (3)
  1. PREDNISOLONE [Suspect]
     Indication: PHACES SYNDROME
  2. TRIAMCINOLONE [Suspect]
     Indication: PHACES SYNDROME
     Dosage: INTRALESIONAL
  3. DEXAMETHASONE [Suspect]
     Indication: PHACES SYNDROME
     Dosage: INTRALESIONAL

REACTIONS (1)
  - Cardiac failure [None]
